FAERS Safety Report 20770926 (Version 2)
Quarter: 2022Q2

REPORT INFORMATION
  Report Type: Report from Study
  Country: US (occurrence: US)
  Receive Date: 20220429
  Receipt Date: 20220528
  Transmission Date: 20220721
  Serious: Yes (Other)
  Sender: FDA-Public Use
  Company Number: US-NOVARTISPH-NVSC2022US097785

PATIENT
  Sex: Male

DRUGS (1)
  1. ENTRESTO [Suspect]
     Active Substance: SACUBITRIL\VALSARTAN
     Indication: Product used for unknown indication
     Dosage: 1 DOSAGE FORM, BID (24/26 MG)
     Route: 048
     Dates: start: 20220211

REACTIONS (7)
  - Cardiac failure [Unknown]
  - COVID-19 [Unknown]
  - Fluid retention [Unknown]
  - Anxiety [Unknown]
  - Weight abnormal [Unknown]
  - Hypervolaemia [Unknown]
  - Weight decreased [Unknown]
